FAERS Safety Report 8379619-1 (Version None)
Quarter: 2012Q2

REPORT INFORMATION
  Report Type: 
  Country: None (occurrence: None)
  Receive Date: 20120523
  Receipt Date: 20120516
  Transmission Date: 20120825
  Serious: Yes (Hospitalization)
  Sender: FDA-Public Use
  Company Number: TW-B.I. PHARMACEUTICALS,INC./RIDGEFIELD-2012-EU-01193GD

PATIENT
  Age: 52 Year
  Sex: Female

DRUGS (4)
  1. BISOPROLOL FUMARATE [Concomitant]
     Indication: HYPERTENSION
     Dosage: 5 MG
  2. HALOPERIDOL [Concomitant]
     Indication: SCHIZOAFFECTIVE DISORDER
     Dosage: 20 MG
  3. TELMISARTAN [Suspect]
     Indication: HYPERTENSION
     Dosage: 40 MG
     Dates: start: 20080201
  4. LITHIUM CARBONATE [Suspect]
     Indication: SCHIZOAFFECTIVE DISORDER
     Dosage: 900 MG

REACTIONS (8)
  - VOMITING [None]
  - TOXICITY TO VARIOUS AGENTS [None]
  - NAUSEA [None]
  - ALTERED STATE OF CONSCIOUSNESS [None]
  - DRUG LEVEL INCREASED [None]
  - DIARRHOEA [None]
  - RENAL FAILURE ACUTE [None]
  - HYPERKALAEMIA [None]
